FAERS Safety Report 9798294 (Version 1)
Quarter: 2014Q1

REPORT INFORMATION
  Report Type: Spontaneous
  Country: US (occurrence: None)
  Receive Date: 20140103
  Receipt Date: 20140103
  Transmission Date: 20141002
  Serious: No
  Sender: FDA-Public Use
  Company Number: None

PATIENT
  Age: 21 Year
  Sex: Female
  Weight: 82.56 kg

DRUGS (1)
  1. MIRENA [Suspect]
     Dates: start: 20120307

REACTIONS (1)
  - Pelvic inflammatory disease [None]
